FAERS Safety Report 9485291 (Version 1)
Quarter: 2013Q3

REPORT INFORMATION
  Report Type: Spontaneous
  Country: GB (occurrence: GB)
  Receive Date: 20130828
  Receipt Date: 20130828
  Transmission Date: 20140515
  Serious: Yes (Disabling, Other)
  Sender: FDA-Public Use
  Company Number: GB-PFIZER INC-2013242281

PATIENT
  Age: 51 Year
  Sex: Female
  Weight: 96 kg

DRUGS (4)
  1. CLINDAMYCIN HCL [Suspect]
     Indication: BREAST ABSCESS
     Route: 048
     Dates: start: 20130716, end: 20130730
  2. METRONIDAZOLE [Suspect]
     Indication: BREAST ABSCESS
     Route: 048
     Dates: start: 20130723, end: 20130802
  3. TRAMADOL HYDROCHLORIDE [Concomitant]
  4. PARACETAMOL [Concomitant]

REACTIONS (8)
  - Generalised erythema [Not Recovered/Not Resolved]
  - Rash pruritic [Not Recovered/Not Resolved]
  - Burning sensation [Not Recovered/Not Resolved]
  - Rash macular [Not Recovered/Not Resolved]
  - Eyelid oedema [Not Recovered/Not Resolved]
  - Oedema mouth [Not Recovered/Not Resolved]
  - Pruritus generalised [Not Recovered/Not Resolved]
  - Throat irritation [Not Recovered/Not Resolved]
